FAERS Safety Report 20047756 (Version 1)
Quarter: 2021Q4

REPORT INFORMATION
  Report Type: Spontaneous
  Country: US (occurrence: US)
  Receive Date: 20211109
  Receipt Date: 20211109
  Transmission Date: 20220303
  Serious: Yes (Other)
  Sender: FDA-Public Use
  Company Number: US-GLAXOSMITHKLINE-US2021GSK229502

PATIENT
  Sex: Male

DRUGS (20)
  1. ZANTAC [Suspect]
     Active Substance: RANITIDINE HYDROCHLORIDE
     Indication: Gastrooesophageal reflux disease
     Dosage: 300 MG, QD
     Route: 065
     Dates: start: 1995, end: 2000
  2. ZANTAC [Suspect]
     Active Substance: RANITIDINE HYDROCHLORIDE
     Dosage: 150 MG, QD
     Route: 065
     Dates: start: 1995, end: 2000
  3. ZANTAC [Suspect]
     Active Substance: RANITIDINE HYDROCHLORIDE
     Dosage: 25 MG, QD
     Route: 065
     Dates: start: 1995, end: 2000
  4. ZANTAC [Suspect]
     Active Substance: RANITIDINE HYDROCHLORIDE
     Dosage: 300 MG, BID
     Route: 065
     Dates: start: 1995, end: 2000
  5. ZANTAC [Suspect]
     Active Substance: RANITIDINE HYDROCHLORIDE
     Dosage: 150 MG, BID
     Route: 065
     Dates: start: 1995, end: 2000
  6. ZANTAC [Suspect]
     Active Substance: RANITIDINE HYDROCHLORIDE
     Dosage: 25 MG, BID
     Route: 065
     Dates: start: 1995, end: 2000
  7. ZANTAC [Suspect]
     Active Substance: RANITIDINE HYDROCHLORIDE
     Indication: Gastrooesophageal reflux disease
     Dosage: 300 MG, QD
     Route: 065
     Dates: start: 1995, end: 2000
  8. ZANTAC [Suspect]
     Active Substance: RANITIDINE HYDROCHLORIDE
     Dosage: 150 MG, QD
     Route: 065
     Dates: start: 1995, end: 2000
  9. ZANTAC [Suspect]
     Active Substance: RANITIDINE HYDROCHLORIDE
     Dosage: 25 MG, QD
     Route: 065
     Dates: start: 1995, end: 2000
  10. ZANTAC [Suspect]
     Active Substance: RANITIDINE HYDROCHLORIDE
     Dosage: 300 MG, BID
     Route: 065
     Dates: start: 1995, end: 2000
  11. ZANTAC [Suspect]
     Active Substance: RANITIDINE HYDROCHLORIDE
     Dosage: 150 MG, BID
     Route: 065
     Dates: start: 1995, end: 2000
  12. ZANTAC [Suspect]
     Active Substance: RANITIDINE HYDROCHLORIDE
     Dosage: 25 MG, BID
     Route: 065
     Dates: start: 1995, end: 2000
  13. RANITIDINE [Suspect]
     Active Substance: RANITIDINE
     Indication: Gastrooesophageal reflux disease
     Dosage: 150 MG, QD
     Route: 065
     Dates: start: 2000, end: 2018
  14. RANITIDINE [Suspect]
     Active Substance: RANITIDINE
     Dosage: 300 MG, QD
     Route: 065
     Dates: start: 2000, end: 2018
  15. RANITIDINE [Suspect]
     Active Substance: RANITIDINE
     Dosage: 150 MG, BID
     Route: 065
     Dates: start: 2000, end: 2018
  16. RANITIDINE [Suspect]
     Active Substance: RANITIDINE
     Dosage: 300 MG, BID
     Route: 065
     Dates: start: 2000, end: 2018
  17. RANITIDINE [Suspect]
     Active Substance: RANITIDINE
     Indication: Gastrooesophageal reflux disease
     Dosage: 150 MG, QD
     Route: 065
     Dates: start: 2000, end: 2018
  18. RANITIDINE [Suspect]
     Active Substance: RANITIDINE
     Dosage: 300 MG, QD
     Route: 065
     Dates: start: 2000, end: 2018
  19. RANITIDINE [Suspect]
     Active Substance: RANITIDINE
     Dosage: 150 MG, BID
     Route: 065
     Dates: start: 2000, end: 2018
  20. RANITIDINE [Suspect]
     Active Substance: RANITIDINE
     Dosage: 300 MG, BID
     Route: 065
     Dates: start: 2000, end: 2018

REACTIONS (1)
  - Prostate cancer [Unknown]
